FAERS Safety Report 4631211-8 (Version None)
Quarter: 2005Q2

REPORT INFORMATION
  Report Type: 
  Country: None (occurrence: None)
  Receive Date: 20050407
  Receipt Date: 20050407
  Transmission Date: 20051028
  Serious: Yes (Other)
  Sender: FDA-Public Use
  Company Number: None

PATIENT
  Sex: Female

DRUGS (1)
  1. BUMEX [Suspect]
     Dosage: 1 MG TAB
     Dates: start: 20041101

REACTIONS (1)
  - STOMACH DISCOMFORT [None]
